FAERS Safety Report 18440187 (Version 1)
Quarter: 2020Q4

REPORT INFORMATION
  Report Type: Spontaneous
  Country: JP (occurrence: JP)
  Receive Date: 20201029
  Receipt Date: 20201029
  Transmission Date: 20210114
  Serious: Yes (Hospitalization, Other)
  Sender: FDA-Public Use
  Company Number: JP-ACCORD-206323

PATIENT
  Age: 70 Year
  Sex: Female

DRUGS (4)
  1. METHYLPREDNISOLONE. [Suspect]
     Active Substance: METHYLPREDNISOLONE
     Indication: IMMUNOSUPPRESSION
     Dosage: 1000 MG/D X 3 D
  2. CYCLOPHOSPHAMIDE/CYCLOPHOSPHAMIDE MONOHYDRATE [Suspect]
     Active Substance: CYCLOPHOSPHAMIDE
     Indication: PRODUCT USED FOR UNKNOWN INDICATION
     Dosage: INITIAL DOSE: 0.5 G/M2
     Route: 042
  3. TACROLIMUS. [Suspect]
     Active Substance: TACROLIMUS
     Indication: IMMUNOSUPPRESSION
     Dosage: ALSO RECEIVED AT THE DOSE OF 3, 4, 5 AND 6 MG
  4. PREDNISOLONE. [Suspect]
     Active Substance: PREDNISOLONE
     Indication: IMMUNOSUPPRESSION
     Dosage: DECREASED TO 20 MG DAILY AND LATER TAPERED OFF

REACTIONS (4)
  - Cytomegalovirus infection [Recovered/Resolved]
  - Pneumomediastinum [Recovered/Resolved]
  - Bronchopulmonary aspergillosis [Recovered/Resolved]
  - Oral candidiasis [Recovered/Resolved]
